FAERS Safety Report 9789453 (Version 2)
Quarter: 2014Q1

REPORT INFORMATION
  Report Type: Spontaneous
  Country: US (occurrence: US)
  Receive Date: 20131231
  Receipt Date: 20140109
  Transmission Date: 20141002
  Serious: Yes (Hospitalization, Other)
  Sender: FDA-Public Use
  Company Number: US-AMGEN-USASP2013090382

PATIENT
  Age: 73 Year
  Sex: Male

DRUGS (3)
  1. ARANESP [Suspect]
     Indication: RENAL FAILURE CHRONIC
     Dosage: 100 MUG, QMO
     Route: 065
  2. CYCLOSPORINE [Concomitant]
     Dosage: UNK
     Route: 065
     Dates: start: 1993
  3. RAPAMUNE [Concomitant]
     Dosage: UNK
     Route: 065
     Dates: start: 201310

REACTIONS (8)
  - Transfusion [Unknown]
  - Thrombin time abnormal [Unknown]
  - Intervertebral disc protrusion [Unknown]
  - Angioedema [Unknown]
  - International normalised ratio abnormal [Unknown]
  - Haemoglobin decreased [Unknown]
  - Haemorrhage [Unknown]
  - Gingival bleeding [Unknown]
